FAERS Safety Report 6430251-6 (Version None)
Quarter: 2009Q4

REPORT INFORMATION
  Report Type: 
  Country: None (occurrence: None)
  Receive Date: 20091106
  Receipt Date: 20091103
  Transmission Date: 20100525
  Serious: Yes (Hospitalization)
  Sender: FDA-Public Use
  Company Number: DE-WYE-G04792409

PATIENT
  Age: 57 Year
  Sex: Female

DRUGS (22)
  1. VENLAFAXINE HCL [Suspect]
     Route: 048
     Dates: start: 20080229, end: 20080305
  2. VENLAFAXINE HCL [Suspect]
     Route: 048
     Dates: start: 20080306, end: 20080307
  3. VENLAFAXINE HCL [Suspect]
     Route: 048
     Dates: start: 20080327, end: 20080328
  4. VENLAFAXINE HCL [Suspect]
     Route: 048
     Dates: start: 20080221, end: 20080228
  5. BISOPROLOL [Concomitant]
     Route: 048
     Dates: start: 20080205, end: 20080410
  6. HYDROCHLOROTHIAZIDE [Concomitant]
     Route: 048
     Dates: start: 20080205, end: 20080410
  7. ZYPREXA [Concomitant]
     Route: 048
     Dates: start: 20080206, end: 20080210
  8. ZYPREXA [Concomitant]
     Route: 048
     Dates: start: 20080211, end: 20080218
  9. ZYPREXA [Concomitant]
     Route: 048
     Dates: start: 20080224, end: 20080226
  10. RISPERDAL [Concomitant]
     Route: 048
     Dates: start: 20080216, end: 20080218
  11. RISPERDAL [Concomitant]
     Route: 048
     Dates: start: 20080219, end: 20080228
  12. RISPERDAL [Concomitant]
     Route: 048
     Dates: start: 20080229, end: 20080302
  13. RISPERDAL [Concomitant]
     Route: 048
     Dates: start: 20080303, end: 20080311
  14. RISPERDAL [Concomitant]
     Route: 048
     Dates: start: 20080312, end: 20080403
  15. SEROQUEL [Concomitant]
     Route: 048
     Dates: start: 20080319, end: 20080324
  16. SEROQUEL [Concomitant]
     Route: 048
     Dates: start: 20080325, end: 20080326
  17. SEROQUEL [Concomitant]
     Route: 048
     Dates: start: 20080327, end: 20080402
  18. SEROQUEL [Concomitant]
     Route: 048
     Dates: start: 20080403, end: 20080410
  19. LORAZEPAM [Concomitant]
     Route: 048
     Dates: start: 20080206, end: 20080228
  20. ZOPICLONE [Concomitant]
     Route: 048
     Dates: start: 20080229, end: 20080327
  21. BIPERIDEN HYDROCHLORIDE TAB [Concomitant]
     Route: 048
     Dates: start: 20080314, end: 20080417
  22. RAMIPRIL [Concomitant]
     Route: 048
     Dates: start: 20080205, end: 20080410

REACTIONS (6)
  - BURNING SENSATION [None]
  - DERMATITIS ALLERGIC [None]
  - ERYTHEMA [None]
  - FACIAL PAIN [None]
  - PARAESTHESIA [None]
  - RASH PUSTULAR [None]
